FAERS Safety Report 9329960 (Version 1)
Quarter: 2013Q2

REPORT INFORMATION
  Report Type: Spontaneous
  Country: US (occurrence: US)
  Receive Date: 20130604
  Receipt Date: 20130604
  Transmission Date: 20140414
  Serious: No
  Sender: FDA-Public Use
  Company Number: US-009507513-1306USA000408

PATIENT
  Age: 16 Year
  Sex: Female
  Weight: 90.7 kg

DRUGS (4)
  1. IMPLANON [Suspect]
     Indication: CONTRACEPTION
     Dosage: 1 ROD UPTO 3 YEARS
     Route: 059
     Dates: start: 201205
  2. IMPLANON [Suspect]
     Indication: MENSTRUAL DISORDER
  3. IBUPROFEN [Concomitant]
  4. ADVIL [Concomitant]

REACTIONS (3)
  - Amenorrhoea [Recovered/Resolved]
  - Metrorrhagia [Unknown]
  - Ear infection [Unknown]
